FAERS Safety Report 15345270 (Version 1)
Quarter: 2018Q3

REPORT INFORMATION
  Report Type: Spontaneous
  Country: CN (occurrence: CN)
  Receive Date: 20180903
  Receipt Date: 20180903
  Transmission Date: 20181010
  Serious: Yes (Other)
  Sender: FDA-Public Use
  Company Number: CN-PFIZER INC-2018350640

PATIENT
  Age: 45 Year
  Sex: Female
  Weight: 45 kg

DRUGS (2)
  1. PHARMORUBICIN [Suspect]
     Active Substance: EPIRUBICIN
     Indication: BREAST CANCER
     Dosage: 130 MG, CYCLIC (ONCE DAILY)
     Route: 041
     Dates: start: 20180612, end: 20180612
  2. CYCLOPHOSPHAMIDE. [Suspect]
     Active Substance: CYCLOPHOSPHAMIDE
     Indication: BREAST CANCER
     Dosage: 894 MG, CYCLIC (ONCE DAILY)
     Route: 041
     Dates: start: 20180612, end: 20180612

REACTIONS (2)
  - Hepatic function abnormal [Recovering/Resolving]
  - Drug-induced liver injury [Unknown]

NARRATIVE: CASE EVENT DATE: 20180621
